FAERS Safety Report 22661391 (Version 1)
Quarter: 2023Q2

REPORT INFORMATION
  Report Type: Spontaneous
  Country: US (occurrence: None)
  Receive Date: 20230630
  Receipt Date: 20230630
  Transmission Date: 20230722
  Serious: No
  Sender: FDA-Public Use
  Company Number: 2023A148859

PATIENT

DRUGS (1)
  1. SYMBICORT [Suspect]
     Active Substance: BUDESONIDE\FORMOTEROL FUMARATE DIHYDRATE
     Indication: Emphysema
     Dosage: UNKNOWN80.0UG UNKNOWN
     Route: 055
     Dates: start: 2020

REACTIONS (5)
  - Gastrooesophageal reflux disease [Unknown]
  - Dyspnoea [Unknown]
  - Product use issue [Unknown]
  - Intentional dose omission [Unknown]
  - Product prescribing error [Unknown]
